FAERS Safety Report 14788563 (Version 1)
Quarter: 2018Q2

REPORT INFORMATION
  Report Type: Report from Study
  Country: None (occurrence: BR)
  Receive Date: 20180423
  Receipt Date: 20180423
  Transmission Date: 20180711
  Serious: Yes (Hospitalization)
  Sender: FDA-Public Use
  Company Number: BR-ABBVIE-18K-020-2331264-00

PATIENT
  Age: 37 Year
  Sex: Male
  Weight: 58 kg

DRUGS (6)
  1. METHOTREXATE. [Concomitant]
     Active Substance: METHOTREXATE
     Indication: RHEUMATOID ARTHRITIS
  2. PREDNISONE. [Concomitant]
     Active Substance: PREDNISONE
     Indication: RHEUMATOID ARTHRITIS
  3. HUMIRA [Suspect]
     Active Substance: ADALIMUMAB
     Indication: RHEUMATOID ARTHRITIS
     Route: 058
     Dates: start: 20160527, end: 20180102
  4. PIROXICAM. [Concomitant]
     Active Substance: PIROXICAM
     Indication: RHEUMATOID ARTHRITIS
  5. ACETAMINOPHEN. [Concomitant]
     Active Substance: ACETAMINOPHEN
     Indication: RHEUMATOID ARTHRITIS
  6. FOLIC ACID. [Concomitant]
     Active Substance: FOLIC ACID
     Indication: RHEUMATOID ARTHRITIS

REACTIONS (6)
  - Pneumonia [Recovered/Resolved]
  - Immunodeficiency [Recovered/Resolved]
  - Anaemia [Recovering/Resolving]
  - Gastric ulcer [Recovering/Resolving]
  - C-reactive protein increased [Unknown]
  - Gastric infection [Recovering/Resolving]

NARRATIVE: CASE EVENT DATE: 20180111
